FAERS Safety Report 8813376 (Version 1)
Quarter: 2012Q4

REPORT INFORMATION
  Report Type: 
  Country: US (occurrence: US)
  Receive Date: 20120927
  Receipt Date: 20120927
  Transmission Date: 20130627
  Serious: No
  Sender: FDA-Public Use
  Company Number: US-AMGEN-USASP2012033935

PATIENT
  Age: 57 Year
  Sex: Female
  Weight: 44.44 kg

DRUGS (5)
  1. PROLIA [Suspect]
     Indication: OSTEOPOROSIS POSTMENOPAUSAL
     Dosage: 60 mg, q6mo
     Route: 058
     Dates: start: 201105, end: 201202
  2. LEXAPRO [Concomitant]
     Dosage: 20 mg, qd
  3. MIRTAZAPINE [Concomitant]
     Dosage: UNK UNK, qd
  4. ZOLPIDEM [Concomitant]
     Dosage: 10 mg, prn
  5. VITAMIN D /00107901/ [Concomitant]
     Dosage: 5000 IU, qd

REACTIONS (3)
  - Dysgeusia [Recovered/Resolved]
  - Sensation of pressure [Recovering/Resolving]
  - Blood zinc decreased [Recovering/Resolving]
